FAERS Safety Report 12999019 (Version 1)
Quarter: 2016Q4

REPORT INFORMATION
  Report Type: Not Available
  Country: FR (occurrence: FR)
  Receive Date: 20161205
  Receipt Date: 20161205
  Transmission Date: 20170207
  Serious: Yes (Death)
  Sender: FDA-Public Use
  Company Number: FR-PURDUE PHARMA-GBR-2016-0042055

PATIENT
  Age: 47 Year
  Sex: Male

DRUGS (10)
  1. BACLOFEN. [Concomitant]
     Active Substance: BACLOFEN
  2. CYAMEMAZINE [Concomitant]
     Active Substance: CYAMEMAZINE
  3. TETRAZEPAM [Concomitant]
     Active Substance: TETRAZEPAM
  4. ACAMPROSATE [Concomitant]
     Active Substance: ACAMPROSATE
  5. OXYCODONE HYDROCHLORIDE. [Suspect]
     Active Substance: OXYCODONE HYDROCHLORIDE
     Indication: PRODUCT USED FOR UNKNOWN INDICATION
     Route: 065
  6. LIDOCAINE. [Concomitant]
     Active Substance: LIDOCAINE
  7. LORAZEPAM. [Concomitant]
     Active Substance: LORAZEPAM
  8. LOPRAZOLAM [Concomitant]
     Active Substance: LOPRAZOLAM
  9. DIAZEPAM. [Concomitant]
     Active Substance: DIAZEPAM
  10. DULOXETINE. [Concomitant]
     Active Substance: DULOXETINE

REACTIONS (2)
  - Accidental overdose [Fatal]
  - Pulmonary oedema [Fatal]

NARRATIVE: CASE EVENT DATE: 2013
